FAERS Safety Report 8829068 (Version 1)
Quarter: 2012Q4

REPORT INFORMATION
  Report Type: 
  Country: US (occurrence: US)
  Receive Date: 20121008
  Receipt Date: 20121008
  Transmission Date: 20130627
  Serious: Yes (Hospitalization, Other)
  Sender: FDA-Public Use
  Company Number: US-ROCHE-1131123

PATIENT
  Sex: Female

DRUGS (4)
  1. RITUXAN [Suspect]
     Indication: IDIOPATHIC THROMBOCYTOPENIC PURPURA
     Route: 065
     Dates: start: 20011226
  2. RITUXAN [Suspect]
     Indication: THROMBOCYTOPENIA
  3. RITUXAN [Suspect]
     Indication: OFF LABEL USE
  4. KEFLEX [Concomitant]

REACTIONS (7)
  - Pyrexia [Unknown]
  - Petechiae [Unknown]
  - Vaginal haemorrhage [Unknown]
  - Arthralgia [Unknown]
  - Haematoma [Unknown]
  - Joint swelling [Unknown]
  - Osteomyelitis [Unknown]
